FAERS Safety Report 10142769 (Version 1)
Quarter: 2014Q2

REPORT INFORMATION
  Report Type: Spontaneous
  Country: US (occurrence: None)
  Receive Date: 20140425
  Receipt Date: 20140425
  Transmission Date: 20141212
  Serious: Yes (Hospitalization, Other)
  Sender: FDA-Public Use
  Company Number: UTC-047009

PATIENT
  Age: 64 Year
  Sex: Female
  Weight: 64.39 kg

DRUGS (4)
  1. TYVASO [Suspect]
     Indication: PULMONARY ARTERIAL HYPERTENSION
     Route: 055
     Dates: start: 20140205
  2. TRACLEER (BONSENTAN) (UNKNOWN) [Concomitant]
  3. REVATIO (SILDENAFIL CITRATE) (UNKNOWN) [Concomitant]
  4. WARFARIN(WARFARIN SODIUM) [Concomitant]

REACTIONS (4)
  - Cardio-respiratory arrest [None]
  - Cardiac failure congestive [None]
  - Malaise [None]
  - Fluid retention [None]
